FAERS Safety Report 18338396 (Version 1)
Quarter: 2020Q4

REPORT INFORMATION
  Report Type: Spontaneous
  Country: JP (occurrence: JP)
  Receive Date: 20201002
  Receipt Date: 20201002
  Transmission Date: 20210113
  Serious: Yes (Death)
  Sender: FDA-Public Use
  Company Number: JP-009507513-2009JPN002410J

PATIENT
  Age: 52 Year
  Sex: Male
  Weight: 75 kg

DRUGS (8)
  1. CARBOPLATIN. [Suspect]
     Active Substance: CARBOPLATIN
     Indication: LUNG ADENOCARCINOMA
     Dosage: 600 MILLIGRAM
     Route: 041
     Dates: start: 20200616, end: 20200616
  2. PANVITAN [Concomitant]
     Active Substance: VITAMINS
     Dosage: UNK
     Route: 048
  3. NAIXAN [Concomitant]
     Active Substance: NAPROXEN SODIUM
     Dosage: UNK
     Route: 048
  4. ALIMTA [Suspect]
     Active Substance: PEMETREXED DISODIUM
     Indication: LUNG ADENOCARCINOMA
     Dosage: 940 MILLIGRAM
     Route: 041
     Dates: start: 20200616, end: 20200616
  5. KEYTRUDA [Suspect]
     Active Substance: PEMBROLIZUMAB
     Indication: LUNG ADENOCARCINOMA
     Dosage: 200 MILLIGRAM, ONCE
     Route: 041
     Dates: start: 20200616, end: 20200616
  6. CALONAL [Concomitant]
     Active Substance: ACETAMINOPHEN
     Dosage: 500 MILLIGRAM
     Route: 048
  7. ANORO [Concomitant]
     Active Substance: UMECLIDINIUM BROMIDE\VILANTEROL TRIFENATATE
     Dosage: UNKNOWN
     Dates: start: 20200625
  8. LANSOPRAZOLE OD [Concomitant]
     Active Substance: LANSOPRAZOLE
     Dosage: UNK
     Route: 048

REACTIONS (1)
  - Immune-mediated hepatitis [Fatal]

NARRATIVE: CASE EVENT DATE: 20200625
